FAERS Safety Report 11441374 (Version 1)
Quarter: 2015Q3

REPORT INFORMATION
  Report Type: Spontaneous
  Country: US (occurrence: US)
  Receive Date: 20150821
  Receipt Date: 20150821
  Transmission Date: 20151125
  Serious: No
  Sender: FDA-Public Use
  Company Number: US-ELI_LILLY_AND_COMPANY-US200806005255

PATIENT
  Sex: Female

DRUGS (4)
  1. CYMBALTA [Suspect]
     Active Substance: DULOXETINE HYDROCHLORIDE
     Indication: DEPRESSION
     Dosage: 60 MG, UNK
     Dates: start: 2006, end: 20061021
  2. METOPROLOL [Concomitant]
     Active Substance: METOPROLOL
  3. DAPRIL [Concomitant]
  4. CYMBALTA [Suspect]
     Active Substance: DULOXETINE HYDROCHLORIDE
     Dosage: 30 MG, DAILY (1/D)
     Dates: start: 20070427

REACTIONS (3)
  - Drug effect increased [Recovered/Resolved]
  - Haemorrhage [Not Recovered/Not Resolved]
  - Contusion [Not Recovered/Not Resolved]

NARRATIVE: CASE EVENT DATE: 2006
